FAERS Safety Report 26100139 (Version 1)
Quarter: 2025Q4

REPORT INFORMATION
  Report Type: Report from Study
  Country: US (occurrence: US)
  Receive Date: 20251128
  Receipt Date: 20251128
  Transmission Date: 20260118
  Serious: Yes (Death)
  Sender: ROCHE
  Company Number: US-ROCHE-10000442755

PATIENT
  Age: 43 Year
  Sex: Female

DRUGS (31)
  1. AVASTIN [Suspect]
     Active Substance: BEVACIZUMAB
     Indication: Malignant neoplasm of unknown primary site
     Route: 042
  2. AVASTIN [Suspect]
     Active Substance: BEVACIZUMAB
     Indication: Small intestine carcinoma
     Route: 042
  3. AVASTIN [Suspect]
     Active Substance: BEVACIZUMAB
     Dosage: DOSING WEIGHT IS 109 KG.
     Route: 065
  4. TYLENOL [Concomitant]
     Active Substance: ACETAMINOPHEN
  5. NORVASC [Concomitant]
     Active Substance: AMLODIPINE BESYLATE
  6. ELIQUIS [Concomitant]
     Active Substance: APIXABAN
  7. BENZOYL PEROXIDE [Concomitant]
     Active Substance: BENZOYL PEROXIDE
  8. DULCOLAX [Concomitant]
  9. CHLORHEXIDINE [Concomitant]
     Active Substance: CHLORHEXIDINE
  10. CLINDAMYCIN [Concomitant]
     Active Substance: CLINDAMYCIN
  11. BENZACLIN [Concomitant]
     Active Substance: BENZOYL PEROXIDE\CLINDAMYCIN PHOSPHATE
  12. ADDERALL [Concomitant]
     Active Substance: AMPHETAMINE ASPARTATE\AMPHETAMINE SULFATE\DEXTROAMPHETAMINE SACCHARATE\DEXTROAMPHETAMINE SULFATE
  13. VALIUM [Concomitant]
     Active Substance: DIAZEPAM
  14. CYMBALTA [Concomitant]
     Active Substance: DULOXETINE HYDROCHLORIDE
  15. EPINEPHRINE [Concomitant]
     Active Substance: EPINEPHRINE
     Dosage: 0.3 MG/0.3 ML
  16. CLIMARA [Concomitant]
     Active Substance: ESTRADIOL
  17. VIVELLE-DOT [Concomitant]
     Active Substance: ESTRADIOL
     Dosage: 0.1 MG/24 HR PATCH
  18. NEURONTIN [Concomitant]
     Active Substance: GABAPENTIN
  19. HYTONE [Concomitant]
     Active Substance: HYDROCORTISONE
  20. NIZORAL [Concomitant]
     Active Substance: KETOCONAZOLE
  21. KEPPRA [Concomitant]
     Active Substance: LEVETIRACETAM
  22. LEVAQUIN [Concomitant]
     Active Substance: LEVOFLOXACIN
  23. XYLOCAINE [Concomitant]
     Active Substance: LIDOCAINE HYDROCHLORIDE
  24. MELATONIN [Concomitant]
     Active Substance: MELATONIN
  25. MS CONTIN [Concomitant]
     Active Substance: MORPHINE SULFATE
  26. MORPHINE SULFATE [Concomitant]
     Active Substance: MORPHINE SULFATE
  27. BACTROBAN [Concomitant]
     Active Substance: MUPIROCIN CALCIUM
  28. NARCAN [Concomitant]
     Active Substance: NALOXONE HYDROCHLORIDE
  29. MYCOSTATIN [Concomitant]
     Active Substance: NYSTATIN
     Dosage: 100,000 UNIT/ML
  30. PROTONIX [Concomitant]
     Active Substance: PANTOPRAZOLE SODIUM
  31. PROMETRIUM [Concomitant]
     Active Substance: PROGESTERONE

REACTIONS (2)
  - Death [Fatal]
  - Off label use [Unknown]
